FAERS Safety Report 24728062 (Version 1)
Quarter: 2024Q4

REPORT INFORMATION
  Report Type: Spontaneous
  Country: US (occurrence: None)
  Receive Date: 20241212
  Receipt Date: 20241212
  Transmission Date: 20250115
  Serious: No
  Sender: Public
  Company Number: None

PATIENT
  Age: 63 Year
  Sex: Male
  Weight: 85.5 kg

DRUGS (2)
  1. REPATHA [Suspect]
     Active Substance: EVOLOCUMAB
     Indication: Low density lipoprotein
     Dosage: OTHER QUANTITY : 1 INJECTION(S);?OTHER FREQUENCY : TWICE A MONTH;?
     Route: 058
  2. METFORMIN [Concomitant]
     Active Substance: METFORMIN HYDROCHLORIDE

REACTIONS (8)
  - Influenza like illness [None]
  - Fatigue [None]
  - Back pain [None]
  - Hyperhidrosis [None]
  - Arthralgia [None]
  - Decreased appetite [None]
  - Balance disorder [None]
  - Brain fog [None]

NARRATIVE: CASE EVENT DATE: 20241207
